FAERS Safety Report 5953830-9 (Version None)
Quarter: 2008Q4

REPORT INFORMATION
  Report Type: 
  Country: None (occurrence: None)
  Receive Date: 20081114
  Receipt Date: 20081104
  Transmission Date: 20090506
  Serious: Yes (Other)
  Sender: FDA-Public Use
  Company Number: US-PFIZER INC-2008075097

PATIENT
  Sex: Female

DRUGS (3)
  1. DILANTIN [Suspect]
  2. DILANTIN [Suspect]
     Route: 048
  3. PHENYTOIN [Suspect]
     Route: 048
     Dates: start: 20080822, end: 20080917

REACTIONS (4)
  - ACTIVITIES OF DAILY LIVING IMPAIRED [None]
  - DYSPHAGIA [None]
  - ILL-DEFINED DISORDER [None]
  - SEDATION [None]
